FAERS Safety Report 20467151 (Version 1)
Quarter: 2022Q1

REPORT INFORMATION
  Report Type: Report from Study
  Country: IT (occurrence: IT)
  Receive Date: 20220214
  Receipt Date: 20220214
  Transmission Date: 20220424
  Serious: Yes (Other)
  Sender: FDA-Public Use
  Company Number: None

PATIENT
  Age: 86 Year
  Sex: Female

DRUGS (12)
  1. OLMESARTAN [Suspect]
     Active Substance: OLMESARTAN
     Indication: Hypertension
     Dosage: OLMESARTAN MEDOXOMIL, UNIT DOSE: 10MG
     Dates: start: 20211215, end: 20211229
  2. ALLOPURINOL [Concomitant]
     Active Substance: ALLOPURINOL
  3. TOUJEO [Concomitant]
     Active Substance: INSULIN GLARGINE
  4. LEVOTHYROXINE SODIUM [Concomitant]
     Active Substance: LEVOTHYROXINE SODIUM
     Dosage: EUTIROX 25 MICROGRAMMI COMPRESSE
  5. LASIX [Concomitant]
     Active Substance: FUROSEMIDE
     Dosage: 100MG
  6. ERYTHROPOIETIN [Concomitant]
     Active Substance: ERYTHROPOIETIN
  7. BISOPROLOL [Concomitant]
     Active Substance: BISOPROLOL
     Dosage: SEQUACOR 1,25 MG COMPRESSE RIVESTITE CON FILM, UNIT DOSE: 2DF
  8. NITRODERM [Concomitant]
     Active Substance: NITROGLYCERIN
     Dosage: NITRODERM TTS 5 MG/DIE CEROTTO TRANSDERMICO
  9. PANTOPRAZOLE [Concomitant]
     Active Substance: PANTOPRAZOLE
  10. NOVORAPID [Concomitant]
     Active Substance: INSULIN ASPART
  11. AMLODIPINE [Concomitant]
     Active Substance: AMLODIPINE BESYLATE
     Dosage: 10MG
  12. ASPIRIN [Concomitant]
     Active Substance: ASPIRIN

REACTIONS (5)
  - Hyperkalaemia [Recovering/Resolving]
  - Renal impairment [Recovering/Resolving]
  - Confusional state [Recovering/Resolving]
  - Abdominal pain upper [Recovering/Resolving]
  - Sopor [Recovering/Resolving]

NARRATIVE: CASE EVENT DATE: 20211230
